FAERS Safety Report 5756315-8 (Version None)
Quarter: 2008Q2

REPORT INFORMATION
  Report Type: 
  Country: None (occurrence: None)
  Receive Date: 20080528
  Receipt Date: 20080528
  Transmission Date: 20081010
  Serious: Yes (Other)
  Sender: FDA-Public Use
  Company Number: None

PATIENT
  Age: 76 Year
  Sex: Male
  Weight: 104.3273 kg

DRUGS (2)
  1. LIPITOR [Suspect]
     Indication: BLOOD CHOLESTEROL
     Dosage: 20MG 1 DAILY
     Dates: start: 20060210, end: 20080510
  2. JTRICOR  10MG [Suspect]
     Indication: BLOOD CHOLESTEROL
     Dosage: 20MG 1 DAILY

REACTIONS (1)
  - MYALGIA [None]
